FAERS Safety Report 8916529 (Version 1)
Quarter: 2012Q4

REPORT INFORMATION
  Report Type: Report from Study
  Country: CA (occurrence: CA)
  Receive Date: 20121120
  Receipt Date: 20121120
  Transmission Date: 20130627
  Serious: Yes (Other)
  Sender: FDA-Public Use
  Company Number: CA-JNJFOC-20120907715

PATIENT
  Age: 31 Year
  Sex: Female
  Weight: 68.5 kg

DRUGS (1)
  1. REMICADE [Suspect]
     Indication: CROHN^S DISEASE
     Route: 042
     Dates: start: 20090920

REACTIONS (3)
  - Abortion spontaneous [Recovered/Resolved]
  - Fall [Unknown]
  - Exposure during pregnancy [Recovered/Resolved]
